FAERS Safety Report 5449983-1 (Version None)
Quarter: 2007Q3

REPORT INFORMATION
  Report Type: 
  Country: None (occurrence: None)
  Receive Date: 20070912
  Receipt Date: 20070907
  Transmission Date: 20080115
  Serious: Yes (Other)
  Sender: FDA-Public Use
  Company Number: JP-SP-2007-03078

PATIENT
  Age: 76 Year
  Sex: Male

DRUGS (2)
  1. IMMUCYST [Suspect]
     Indication: CARCINOMA IN SITU OF BLADDER
     Route: 043
     Dates: start: 20060704, end: 20060802
  2. LEVOFLOXACIN [Concomitant]
     Dosage: 3 TABS/DAY
     Route: 048
     Dates: start: 20060718, end: 20060802

REACTIONS (3)
  - ARTHRITIS [None]
  - CHEST DISCOMFORT [None]
  - MALAISE [None]
